FAERS Safety Report 8112642-0 (Version None)
Quarter: 2012Q1

REPORT INFORMATION
  Report Type: 
  Country: None (occurrence: None)
  Receive Date: 20120203
  Receipt Date: 20120123
  Transmission Date: 20120608
  Serious: Yes (Other)
  Sender: FDA-Public Use
  Company Number: JP-ROCHE-1033384

PATIENT
  Age: 84 Year
  Sex: Male

DRUGS (2)
  1. LUCENTIS [Suspect]
     Dosage: REGIMEN 2
     Route: 031
     Dates: start: 20110607, end: 20110607
  2. LUCENTIS [Suspect]
     Indication: POLYPOIDAL CHOROIDAL VASCULOPATHY
     Route: 050
     Dates: start: 20110510

REACTIONS (3)
  - VITREOUS OPACITIES [None]
  - VITREOUS DETACHMENT [None]
  - RETINAL HAEMORRHAGE [None]
